FAERS Safety Report 6433899-8 (Version None)
Quarter: 2009Q4

REPORT INFORMATION
  Report Type: 
  Country: None (occurrence: None)
  Receive Date: 20091110
  Receipt Date: 20091029
  Transmission Date: 20100525
  Serious: Yes (Other)
  Sender: FDA-Public Use
  Company Number: DK-AMGEN-US365892

PATIENT
  Sex: Female

DRUGS (3)
  1. ENBREL [Suspect]
     Indication: JUVENILE ARTHRITIS
     Route: 058
     Dates: start: 20090828, end: 20090902
  2. VITAMIN B COMPLEX CAP [Concomitant]
     Dosage: UNKNOWN
     Route: 065
     Dates: end: 20090904
  3. ISONIAZID [Concomitant]
     Dosage: UNKNOWN
     Route: 065
     Dates: start: 20090627, end: 20090904

REACTIONS (2)
  - ALANINE AMINOTRANSFERASE INCREASED [None]
  - INJECTION SITE RASH [None]
